FAERS Safety Report 5579113-7 (Version None)
Quarter: 2008Q1

REPORT INFORMATION
  Report Type: 
  Country: None (occurrence: None)
  Receive Date: 20080102
  Receipt Date: 20071226
  Transmission Date: 20080703
  Serious: Yes (Hospitalization)
  Sender: FDA-Public Use
  Company Number: PHRM2007FR02886

PATIENT
  Age: 81 Year
  Sex: Male

DRUGS (6)
  1. TEGRETOL [Suspect]
     Indication: FACIAL NEURALGIA
     Dosage: 200 MG, BID
     Route: 048
     Dates: end: 20060411
  2. TANGANIL [Concomitant]
  3. VOGALENE [Concomitant]
  4. COKENZEN [Concomitant]
  5. IMOVANE [Concomitant]
  6. VASTAREL ^BIOPHARMA^ [Concomitant]

REACTIONS (11)
  - APHASIA [None]
  - AREFLEXIA [None]
  - BALANCE DISORDER [None]
  - CEREBELLAR SYNDROME [None]
  - COORDINATION ABNORMAL [None]
  - DYSARTHRIA [None]
  - LEUKOARAIOSIS [None]
  - MUSCULAR WEAKNESS [None]
  - NAUSEA [None]
  - SPEECH DISORDER [None]
  - VESTIBULAR DISORDER [None]
